FAERS Safety Report 21962403 (Version 1)
Quarter: 2023Q1

REPORT INFORMATION
  Report Type: Report from Study
  Country: US (occurrence: US)
  Receive Date: 20230207
  Receipt Date: 20230207
  Transmission Date: 20230418
  Serious: No
  Sender: FDA-Public Use
  Company Number: US-ORG100014127-2022001263

PATIENT
  Age: 74 Year
  Sex: Male

DRUGS (6)
  1. LYSODREN [Suspect]
     Active Substance: MITOTANE
     Indication: Adrenal gland cancer
     Dosage: 03 TABLETS 03 TIMES A DAY
     Route: 048
     Dates: start: 20211210
  2. HYDROCO/APAP TAB 7.5-325; [Concomitant]
     Indication: Product used for unknown indication
  3. Lovenox  Inj 60/0.6 ml [Concomitant]
     Indication: Product used for unknown indication
  4. TYLENOL TAB 500MG [Concomitant]
     Indication: Product used for unknown indication
  5. VITAMIN D CAP 50000UNT [Concomitant]
     Indication: Product used for unknown indication
  6. ZYPREXA TAB 2.5MG [Concomitant]
     Indication: Product used for unknown indication

REACTIONS (3)
  - Stress [Not Recovered/Not Resolved]
  - Fatigue [Not Recovered/Not Resolved]
  - Asthenia [Not Recovered/Not Resolved]
